FAERS Safety Report 8496858-X (Version None)
Quarter: 2012Q3

REPORT INFORMATION
  Report Type: 
  Country: None (occurrence: None)
  Receive Date: 20120709
  Receipt Date: 20120626
  Transmission Date: 20120928
  Serious: Yes (Hospitalization)
  Sender: FDA-Public Use
  Company Number: FI-ELI_LILLY_AND_COMPANY-FI201206008663

PATIENT
  Sex: Female

DRUGS (6)
  1. FORTEO [Suspect]
     Dosage: 20 UG, QD
     Route: 065
     Dates: start: 20120601
  2. CALCIUM +VIT D [Concomitant]
     Indication: MEDICAL DIET
     Dosage: UNK, UNKNOWN
     Route: 065
  3. PRIMASPAN [Concomitant]
     Indication: PAIN
     Dosage: UNK, UNKNOWN
     Route: 065
  4. IMOVANE [Concomitant]
     Indication: INSOMNIA
     Dosage: UNK, UNKNOWN
     Route: 065
  5. FORTEO [Suspect]
     Indication: OSTEOPOROSIS
     Dosage: 20 UG, QD
     Route: 058
     Dates: start: 20101115
  6. ACETAMINOPHEN [Concomitant]
     Indication: PAIN
     Dosage: UNK, UNKNOWN
     Route: 065

REACTIONS (1)
  - ARRHYTHMIA [None]
